FAERS Safety Report 23164956 (Version 4)
Quarter: 2025Q1

REPORT INFORMATION
  Report Type: Report from Study
  Country: CA (occurrence: CA)
  Receive Date: 20231109
  Receipt Date: 20250305
  Transmission Date: 20250409
  Serious: Yes (Hospitalization)
  Sender: ABBVIE
  Company Number: CA-ABBVIE-5487985

PATIENT
  Age: 67 Year
  Sex: Male

DRUGS (9)
  1. VENETOCLAX [Suspect]
     Active Substance: VENETOCLAX
     Indication: Acute myeloid leukaemia
     Route: 048
     Dates: start: 20230828, end: 20230929
  2. VENETOCLAX [Suspect]
     Active Substance: VENETOCLAX
     Indication: Acute myeloid leukaemia
     Route: 048
     Dates: start: 20231010, end: 20231017
  3. VENETOCLAX [Suspect]
     Active Substance: VENETOCLAX
     Indication: Acute myeloid leukaemia
     Route: 048
     Dates: start: 20230725, end: 20230821
  4. VENETOCLAX [Suspect]
     Active Substance: VENETOCLAX
     Indication: Acute myeloid leukaemia
     Route: 048
     Dates: start: 20231017, end: 20231020
  5. AZACITIDINE [Suspect]
     Active Substance: AZACITIDINE
     Indication: Acute myeloid leukaemia
     Dosage: FREQUENCY TEXT: DAYS 1-7 PER CYCLE
     Route: 065
     Dates: start: 20230828, end: 20230906
  6. AZACITIDINE [Suspect]
     Active Substance: AZACITIDINE
     Indication: Acute myeloid leukaemia
     Dosage: FREQUENCY TEXT: DAYS 1-7 PER CYCLE
     Route: 065
     Dates: start: 20230725, end: 20230731
  7. AZACITIDINE [Suspect]
     Active Substance: AZACITIDINE
     Indication: Acute myeloid leukaemia
     Dosage: FREQUENCY TEXT: DAYS 1-7 PER CYCLE
     Route: 065
     Dates: start: 20231010, end: 20231016
  8. COVID-19 vaccine mRNA [Concomitant]
     Indication: COVID-19 immunisation
  9. COVID-19 vaccine mRNA [Concomitant]
     Indication: COVID-19 immunisation

REACTIONS (1)
  - Incarcerated inguinal hernia [Recovered/Resolved]

NARRATIVE: CASE EVENT DATE: 20231017
